FAERS Safety Report 20255053 (Version 1)
Quarter: 2021Q4

REPORT INFORMATION
  Report Type: Spontaneous
  Country: JP (occurrence: JP)
  Receive Date: 20211230
  Receipt Date: 20211230
  Transmission Date: 20220303
  Serious: Yes (Other)
  Sender: FDA-Public Use
  Company Number: JP-PFIZER INC-202101808343

PATIENT
  Age: 49 Year
  Sex: Female

DRUGS (4)
  1. GABAPENTIN [Suspect]
     Active Substance: GABAPENTIN
     Indication: Epilepsy
     Dosage: 1800 MG, DAILY
     Route: 048
     Dates: start: 20211015, end: 20211105
  2. GABAPENTIN [Suspect]
     Active Substance: GABAPENTIN
     Dosage: 1500 MG, DAILY
     Route: 048
     Dates: start: 20211106, end: 20211119
  3. GABAPENTIN [Suspect]
     Active Substance: GABAPENTIN
     Dosage: 1200 MG, DAILY
     Route: 048
     Dates: start: 20211120, end: 20211203
  4. GABAPENTIN [Suspect]
     Active Substance: GABAPENTIN
     Dosage: 900 MG, DAILY
     Route: 048
     Dates: start: 20211204

REACTIONS (2)
  - Seizure [Recovered/Resolved]
  - Mood altered [Unknown]

NARRATIVE: CASE EVENT DATE: 20211201
